FAERS Safety Report 24378602 (Version 1)
Quarter: 2024Q3

REPORT INFORMATION
  Report Type: Spontaneous
  Country: US (occurrence: US)
  Receive Date: 20240930
  Receipt Date: 20240930
  Transmission Date: 20241017
  Serious: No
  Sender: PAREXEL
  Company Number: US-Coherus Biosciences, Inc.-2024-COH-US000536

PATIENT

DRUGS (3)
  1. ADALIMUMAB-AQVH [Suspect]
     Active Substance: ADALIMUMAB-AQVH
     Indication: Rheumatoid arthritis
     Dosage: 40MG/0.8 ML, Q2WEEKS
     Route: 058
     Dates: start: 202402, end: 202402
  2. ADALIMUMAB-AQVH [Suspect]
     Active Substance: ADALIMUMAB-AQVH
     Dosage: 40MG/0.8 ML, Q2WEEKS
     Route: 058
     Dates: start: 20240605, end: 20240605
  3. ADALIMUMAB-AQVH [Suspect]
     Active Substance: ADALIMUMAB-AQVH
     Dosage: 40MG/0.8 ML, Q2WEEKS
     Route: 058
     Dates: start: 20240619, end: 20240619

REACTIONS (2)
  - Injection site bruising [Not Recovered/Not Resolved]
  - Device malfunction [Unknown]

NARRATIVE: CASE EVENT DATE: 20240619
